FAERS Safety Report 5786623-6 (Version None)
Quarter: 2008Q2

REPORT INFORMATION
  Report Type: 
  Country: None (occurrence: None)
  Receive Date: 20080624
  Receipt Date: 20080612
  Transmission Date: 20081010
  Serious: Yes (Death)
  Sender: FDA-Public Use
  Company Number: CA-PFIZER INC-2008050730

PATIENT
  Age: 48 Year
  Sex: Male

DRUGS (6)
  1. SERTRALINE [Suspect]
  2. MORPHINE [Interacting]
  3. ACETAMINOPHEN W/ CODEINE [Interacting]
     Route: 048
  4. LORAZEPAM [Interacting]
  5. BISACODYL [Concomitant]
  6. CLONAZEPAM [Concomitant]

REACTIONS (6)
  - BRONCHOPNEUMONIA [None]
  - DRUG INTERACTION [None]
  - DRUG TOXICITY [None]
  - PULMONARY OEDEMA [None]
  - RESPIRATORY DEPRESSION [None]
  - SEROTONIN SYNDROME [None]
